FAERS Safety Report 8034653-6 (Version None)
Quarter: 2012Q1

REPORT INFORMATION
  Report Type: 
  Country: None (occurrence: None)
  Receive Date: 20120110
  Receipt Date: 20120105
  Transmission Date: 20120608
  Serious: Yes (Disabling)
  Sender: FDA-Public Use
  Company Number: US-MERCK-1107USA03590

PATIENT
  Age: 40 Year
  Sex: Female

DRUGS (4)
  1. FOSAMAX [Suspect]
     Indication: OSTEOPENIA
     Route: 048
     Dates: start: 19950101, end: 20080101
  2. FOSAMAX [Suspect]
     Route: 048
  3. FOSAMAX [Suspect]
     Indication: OSTEOPOROSIS
     Route: 048
     Dates: start: 19950101, end: 20080101
  4. FOSAMAX [Suspect]
     Route: 048

REACTIONS (13)
  - TOOTH INJURY [None]
  - STOMATITIS [None]
  - OSTEONECROSIS OF JAW [None]
  - GINGIVAL DISORDER [None]
  - ORAL INFECTION [None]
  - TOOTH FRACTURE [None]
  - ORAL HERPES [None]
  - SWOLLEN TONGUE [None]
  - IMPAIRED HEALING [None]
  - JAW DISORDER [None]
  - DENTAL CARIES [None]
  - ORAL DISORDER [None]
  - OSTEOMYELITIS [None]
